FAERS Safety Report 4570673-1 (Version None)
Quarter: 2005Q1

REPORT INFORMATION
  Report Type: 
  Country: None (occurrence: None)
  Receive Date: 20050204
  Receipt Date: 20031004
  Transmission Date: 20050727
  Serious: Yes (Death, Life-Threatening, Hospitalization)
  Sender: FDA-Public Use
  Company Number: PHHO2003NO12562

PATIENT
  Age: 61 Year
  Sex: Male
  Weight: 67 kg

DRUGS (5)
  1. NEORAL [Suspect]
     Indication: RENAL TRANSPLANT
     Dosage: 50 MG, BID
     Route: 048
     Dates: start: 19860921
  2. PREDNISOLONE [Suspect]
     Indication: RENAL TRANSPLANT
  3. LESCOL [Suspect]
     Indication: RENAL TRANSPLANT
     Dosage: NO MEDICATION
     Dates: start: 20030619, end: 20031004
  4. LESCOL [Suspect]
     Dosage: 80 MG, QD
     Route: 048
     Dates: start: 20031005
  5. LESCOL [Suspect]
     Dosage: 80 MG, QD
     Route: 048
     Dates: start: 20020930, end: 20030618

REACTIONS (13)
  - ABDOMINAL MASS [None]
  - ANAEMIA [None]
  - B-CELL LYMPHOMA [None]
  - BLOOD CREATININE INCREASED [None]
  - CONCOMITANT DISEASE PROGRESSION [None]
  - GRAFT LOSS [None]
  - LARGE INTESTINE PERFORATION [None]
  - LISTERIOSIS [None]
  - LUNG INFILTRATION [None]
  - PULMONARY OEDEMA [None]
  - PYREXIA [None]
  - RENAL IMPAIRMENT [None]
  - SURGERY [None]
